FAERS Safety Report 8530057-8 (Version None)
Quarter: 2012Q3

REPORT INFORMATION
  Report Type: 
  Country: None (occurrence: None)
  Receive Date: 20120723
  Receipt Date: 20120717
  Transmission Date: 20120928
  Serious: Yes (Death, Hospitalization)
  Sender: FDA-Public Use
  Company Number: FR-BRISTOL-MYERS SQUIBB COMPANY-16528846

PATIENT
  Age: 40 Year
  Sex: Female

DRUGS (3)
  1. FENTANYL [Concomitant]
     Dates: start: 20120228
  2. TEMSIROLIMUS [Suspect]
     Indication: OVARIAN CANCER METASTATIC
     Dosage: TEMSIROLIMUS INJ, 20MG,1/7 DAYS.
     Dates: start: 20120221, end: 20120403
  3. CETUXIMAB [Suspect]
     Indication: OVARIAN CANCER METASTATIC
     Dosage: CETUXIMAB INJ;250MG/M2 14FEB12-14FEB12 21FEB12-03APR12(41 DAYS)).
     Dates: start: 20120214, end: 20120403

REACTIONS (4)
  - GAS GANGRENE [None]
  - SEPTIC SHOCK [None]
  - BLOOD CREATINE PHOSPHOKINASE INCREASED [None]
  - DIARRHOEA [None]
